FAERS Safety Report 8607269-8 (Version None)
Quarter: 2012Q3

REPORT INFORMATION
  Report Type: 
  Country: None (occurrence: None)
  Receive Date: 20120821
  Receipt Date: 20120816
  Transmission Date: 20120928
  Serious: Yes (Death, Hospitalization, Other)
  Sender: FDA-Public Use
  Company Number: CA-GENZYME-THYM-1003381

PATIENT
  Sex: Female
  Weight: 115 kg

DRUGS (6)
  1. VORICONAZOLE [Concomitant]
     Indication: PRODUCT USED FOR UNKNOWN INDICATION
     Dosage: UNK
     Route: 065
  2. THYMOGLOBULIN [Suspect]
     Dosage: 2 MG/KG, QD
     Route: 042
     Dates: start: 20110416, end: 20110416
  3. THYMOGLOBULIN [Suspect]
     Dosage: 2 MG/KG, QD
     Route: 042
     Dates: start: 20110419, end: 20110419
  4. CYCLOSPORINE [Concomitant]
     Indication: PRODUCT USED FOR UNKNOWN INDICATION
     Dosage: UNK
     Route: 065
  5. THYMOGLOBULIN [Suspect]
     Indication: PROPHYLAXIS AGAINST GRAFT VERSUS HOST DISEASE
     Dosage: 0.5 MG/KG, QD
     Route: 042
     Dates: start: 20110415, end: 20110415
  6. GANCICLOVIR [Concomitant]
     Indication: PRODUCT USED FOR UNKNOWN INDICATION
     Dosage: UNK
     Route: 065

REACTIONS (3)
  - CYTOMEGALOVIRUS VIRAEMIA [None]
  - MULTI-ORGAN FAILURE [None]
  - BRONCHOPULMONARY ASPERGILLOSIS [None]
